FAERS Safety Report 6410745-X (Version None)
Quarter: 2009Q4

REPORT INFORMATION
  Report Type: 
  Country: None (occurrence: None)
  Receive Date: 20091020
  Receipt Date: 20091020
  Transmission Date: 20100525
  Serious: Yes (Congenital Anomaly, Other)
  Sender: FDA-Public Use
  Company Number: None

PATIENT
  Age: 17 Year
  Sex: Female
  Weight: 58.0604 kg

DRUGS (3)
  1. PROZAC [Suspect]
     Indication: ANXIETY
     Dosage: 40 MG ONE A DAY UNK
     Route: 065
     Dates: start: 20010101, end: 20091018
  2. PROZAC [Suspect]
     Indication: BIPOLAR DISORDER
     Dosage: 40 MG ONE A DAY UNK
     Route: 065
     Dates: start: 20010101, end: 20091018
  3. PROZAC [Suspect]
     Indication: DEPRESSION
     Dosage: 40 MG ONE A DAY UNK
     Route: 065
     Dates: start: 20010101, end: 20091018

REACTIONS (37)
  - ABDOMINAL DISCOMFORT [None]
  - ABDOMINAL PAIN UPPER [None]
  - ABNORMAL DREAMS [None]
  - AGGRESSION [None]
  - AGITATION [None]
  - AMNESIA [None]
  - ANXIETY [None]
  - ARTHRALGIA [None]
  - ASTHENIA [None]
  - CONFUSIONAL STATE [None]
  - COORDINATION ABNORMAL [None]
  - DECREASED APPETITE [None]
  - DEPRESSION [None]
  - DIARRHOEA [None]
  - DISTURBANCE IN ATTENTION [None]
  - DYSPNOEA [None]
  - EUPHORIC MOOD [None]
  - HALLUCINATION [None]
  - HOSTILITY [None]
  - HYPERHIDROSIS [None]
  - HYPERREFLEXIA [None]
  - INSOMNIA [None]
  - IRRITABILITY [None]
  - LIBIDO DECREASED [None]
  - MENTAL DISORDER [None]
  - MOOD ALTERED [None]
  - MYALGIA [None]
  - NERVOUSNESS [None]
  - OROPHARYNGEAL PAIN [None]
  - PANIC ATTACK [None]
  - PRURITUS [None]
  - RESTLESSNESS [None]
  - RHINORRHOEA [None]
  - SKIN TIGHTNESS [None]
  - SUICIDAL IDEATION [None]
  - THIRST [None]
  - URINE OUTPUT INCREASED [None]
